FAERS Safety Report 12088679 (Version 1)
Quarter: 2016Q1

REPORT INFORMATION
  Report Type: Spontaneous
  Country: US (occurrence: US)
  Receive Date: 20160218
  Receipt Date: 20160218
  Transmission Date: 20160526
  Serious: Yes (Hospitalization, Disabling, Other)
  Sender: FDA-Public Use
  Company Number: US-EMD SERONO-231503J07USA

PATIENT
  Age: 35 Year
  Sex: Female
  Weight: 60 kg

DRUGS (9)
  1. REBIF [Suspect]
     Active Substance: INTERFERON BETA-1A
     Route: 058
  2. PRIALT [Concomitant]
     Active Substance: ZICONOTIDE ACETATE
     Indication: MULTIPLE SCLEROSIS
     Dosage: VIA BACLOFEN PUMP
     Route: 037
     Dates: start: 2000
  3. LASIX [Concomitant]
     Active Substance: FUROSEMIDE
     Indication: OEDEMA
  4. LASIX [Concomitant]
     Active Substance: FUROSEMIDE
     Indication: CEREBRAL PALSY
     Dates: start: 2000
  5. REBIF [Suspect]
     Active Substance: INTERFERON BETA-1A
     Indication: MULTIPLE SCLEROSIS
     Route: 058
     Dates: start: 20040621
  6. REBIF [Suspect]
     Active Substance: INTERFERON BETA-1A
     Route: 058
  7. CARDIZEM [Concomitant]
     Active Substance: DILTIAZEM HYDROCHLORIDE
     Indication: HEART RATE INCREASED
     Dates: start: 2000
  8. BACLOFEN. [Concomitant]
     Active Substance: BACLOFEN
     Indication: MULTIPLE SCLEROSIS
     Dosage: CONTINUOUSLY VIA INTRATHECAL PUMP
     Route: 037
     Dates: start: 2005
  9. WELLBUTRIN [Concomitant]
     Active Substance: BUPROPION HYDROCHLORIDE
     Indication: NERVOUS SYSTEM DISORDER

REACTIONS (8)
  - Pulmonary thrombosis [Recovered/Resolved]
  - Urinary tract infection [Recovered/Resolved]
  - Mobility decreased [Not Recovered/Not Resolved]
  - Thrombosis [Not Recovered/Not Resolved]
  - Multiple sclerosis relapse [Recovered/Resolved]
  - Asthma [Unknown]
  - Pneumonia [Recovered/Resolved]
  - Device breakage [Unknown]

NARRATIVE: CASE EVENT DATE: 2005
